FAERS Safety Report 19888917 (Version 6)
Quarter: 2021Q4

REPORT INFORMATION
  Report Type: Report from Study
  Country: IN (occurrence: IN)
  Receive Date: 20210928
  Receipt Date: 20211223
  Transmission Date: 20220303
  Serious: Yes (Death, Hospitalization)
  Sender: FDA-Public Use
  Company Number: NVSC2021IN214077

PATIENT
  Age: 67 Year
  Sex: Male
  Weight: 59 kg

DRUGS (12)
  1. CAPMATINIB [Suspect]
     Active Substance: CAPMATINIB
     Indication: Non-small cell lung cancer
     Dosage: 400 MG, BID
     Route: 048
     Dates: start: 20210705, end: 20210918
  2. TORSEMIDE [Concomitant]
     Active Substance: TORSEMIDE
     Indication: Swelling
     Dosage: 5 MG, QD
     Route: 048
     Dates: start: 20210906, end: 20210918
  3. BUDESONIDE\FORMOTEROL FUMARATE [Concomitant]
     Active Substance: BUDESONIDE\FORMOTEROL FUMARATE
     Indication: Pleural effusion
     Dosage: UNK
     Route: 065
     Dates: start: 20210919
  4. EFCORLIN [Concomitant]
     Indication: Pleural effusion
     Dosage: UNK
     Route: 065
     Dates: start: 20210919, end: 20210930
  5. LEVOLIN [Concomitant]
     Indication: Pleural effusion
     Dosage: UNK
     Route: 065
     Dates: start: 20210919
  6. MEROPENEM [Concomitant]
     Active Substance: MEROPENEM
     Indication: Pleural effusion
     Dosage: UNK
     Route: 065
     Dates: start: 20210919, end: 20210930
  7. TARGOCID [Concomitant]
     Active Substance: TEICOPLANIN
     Indication: Pleural effusion
     Dosage: UNK
     Route: 065
     Dates: start: 20210919, end: 20210925
  8. VORICONAZOLE [Concomitant]
     Active Substance: VORICONAZOLE
     Indication: Pleural effusion
     Dosage: UNK
     Route: 065
     Dates: start: 20210919, end: 20210920
  9. AMLODIP [Concomitant]
     Indication: Pleural effusion
     Dosage: UNK
     Route: 065
     Dates: start: 20210919, end: 20210919
  10. METOCLOPRAMIDE HYDROCHLORIDE [Concomitant]
     Active Substance: METOCLOPRAMIDE HYDROCHLORIDE
     Indication: Pleural effusion
     Dosage: UNK
     Route: 065
     Dates: start: 20210919, end: 20210919
  11. CEFOPERAZONE SODIUM\SULBACTAM SODIUM [Concomitant]
     Active Substance: CEFOPERAZONE SODIUM\SULBACTAM SODIUM
     Indication: Pleural effusion
     Dosage: UNK
     Route: 065
     Dates: start: 20210919, end: 20210920
  12. LEVOFLOXACIN [Concomitant]
     Active Substance: LEVOFLOXACIN
     Indication: Pleural effusion
     Dosage: UNK
     Route: 065
     Dates: start: 20210919, end: 20210925

REACTIONS (1)
  - Sepsis [Fatal]

NARRATIVE: CASE EVENT DATE: 20210919
